FAERS Safety Report 10353666 (Version 2)
Quarter: 2014Q3

REPORT INFORMATION
  Report Type: Report from Study
  Country: DE (occurrence: DE)
  Receive Date: 20140731
  Receipt Date: 20140827
  Transmission Date: 20150326
  Serious: Yes (Hospitalization)
  Sender: FDA-Public Use
  Company Number: DE-BRISTOL-MYERS SQUIBB COMPANY-21253364

PATIENT
  Age: 79 Year
  Sex: Female
  Weight: 84 kg

DRUGS (3)
  1. ERBITUX [Suspect]
     Active Substance: CETUXIMAB
     Indication: COLORECTAL CANCER METASTATIC
     Dosage: ON UNK-250MG/M2, 24APR14.
     Route: 042
     Dates: start: 20140403
  2. FLUOROURACIL. [Concomitant]
     Active Substance: FLUOROURACIL
     Indication: COLORECTAL CANCER METASTATIC
     Dosage: 21MAR14-24APR14:3480MG/M2:33DAYS?24APR14-30APR14:2000MG/M2:6DAYS
     Route: 042
     Dates: start: 20140321, end: 20140430
  3. FOLINIC ACID [Concomitant]
     Active Substance: LEUCOVORIN
     Indication: COLORECTAL CANCER METASTATIC
     Route: 042
     Dates: start: 20140321, end: 20140424

REACTIONS (4)
  - Anaemia [Recovered/Resolved]
  - Retroperitoneal haematoma [Recovered/Resolved]
  - Renal failure acute [Recovered/Resolved]
  - Nephritis [Recovered/Resolved]

NARRATIVE: CASE EVENT DATE: 20140430
